FAERS Safety Report 5764135-3 (Version None)
Quarter: 2008Q2

REPORT INFORMATION
  Report Type: 
  Country: None (occurrence: None)
  Receive Date: 20080604
  Receipt Date: 20080523
  Transmission Date: 20081010
  Serious: Yes (Other)
  Sender: FDA-Public Use
  Company Number: 2008BI013715

PATIENT
  Age: 54 Year
  Sex: Male

DRUGS (4)
  1. ZEVALIN [Suspect]
     Indication: NON-HODGKIN'S LYMPHOMA
     Dosage: 0.3 MCI/KG;1X;IV
     Route: 042
     Dates: start: 20041124
  2. RITUXAN [Concomitant]
  3. FLUDARABINE PHOSPHATE [Concomitant]
  4. MITOXANTRONE [Concomitant]

REACTIONS (5)
  - CYTOGENETIC ABNORMALITY [None]
  - MYELODYSPLASTIC SYNDROME [None]
  - NON-HODGKIN'S LYMPHOMA RECURRENT [None]
  - REFRACTORY ANAEMIA WITH AN EXCESS OF BLASTS [None]
  - REFRACTORY ANAEMIA WITH RINGED SIDEROBLASTS [None]
